FAERS Safety Report 8173388-6 (Version None)
Quarter: 2012Q1

REPORT INFORMATION
  Report Type: 
  Country: None (occurrence: None)
  Receive Date: 20120229
  Receipt Date: 20120222
  Transmission Date: 20120608
  Serious: Yes (Hospitalization, Other)
  Sender: FDA-Public Use
  Company Number: DE-ASTELLAS-2012EU001297

PATIENT
  Sex: Male
  Weight: 100 kg

DRUGS (6)
  1. CORTISONE ACETATE [Concomitant]
     Indication: PYODERMA GANGRENOSUM
     Dosage: UNK
     Route: 065
  2. MYFORTIC [Concomitant]
     Indication: PYODERMA GANGRENOSUM
     Dosage: 720 MG, BID
     Route: 048
     Dates: start: 20100101
  3. METHYLPREDNISOLONE [Concomitant]
     Indication: PYODERMA GANGRENOSUM
     Dosage: 50 MG, UID/QD
     Route: 048
     Dates: start: 20120201
  4. GENTAMICIN [Concomitant]
     Indication: WOUND
     Dosage: UNK
     Route: 065
  5. PROTOPIC [Suspect]
     Indication: PYODERMA GANGRENOSUM
     Dosage: 0.1 %, BID
     Route: 061
     Dates: start: 20110420, end: 20120130
  6. JURNISTA BET.M [Concomitant]
     Indication: BONE PAIN
     Dosage: 16 MG, UID/QD
     Route: 048
     Dates: start: 20110101

REACTIONS (3)
  - RENAL FAILURE ACUTE [None]
  - DRUG LEVEL INCREASED [None]
  - OFF LABEL USE [None]
